FAERS Safety Report 18536985 (Version 3)
Quarter: 2021Q1

REPORT INFORMATION
  Report Type: Other
  Country: US (occurrence: US)
  Receive Date: 20201124
  Receipt Date: 20210127
  Transmission Date: 20210419
  Serious: Yes (Other)
  Sender: FDA-Public Use
  Company Number: US-ROCHE-2714732

PATIENT

DRUGS (2)
  1. OCREVUS [Suspect]
     Active Substance: OCRELIZUMAB
     Indication: MULTIPLE SCLEROSIS
     Route: 065
  2. RITUXAN [Suspect]
     Active Substance: RITUXIMAB
     Indication: MULTIPLE SCLEROSIS
     Route: 065

REACTIONS (9)
  - Hypertension [Unknown]
  - Intentional product use issue [Unknown]
  - Off label use [Unknown]
  - JC polyomavirus test positive [Unknown]
  - Blood cholesterol increased [Unknown]
  - Rheumatoid arthritis [Unknown]
  - Diabetes mellitus [Unknown]
  - Depression [Unknown]
  - Multiple sclerosis relapse [Unknown]

NARRATIVE: CASE EVENT DATE: 20200301
